FAERS Safety Report 11908199 (Version 2)
Quarter: 2016Q1

REPORT INFORMATION
  Report Type: Spontaneous
  Country: US (occurrence: US)
  Receive Date: 20160111
  Receipt Date: 20160119
  Transmission Date: 20160526
  Serious: Yes (Hospitalization)
  Sender: FDA-Public Use
  Company Number: US-UNITED THERAPEUTICS-UNT-2015-015993

PATIENT
  Age: 48 Year
  Sex: Female
  Weight: 61.22 kg

DRUGS (6)
  1. ORENITRAM [Suspect]
     Active Substance: TREPROSTINIL
     Dosage: UNK
  2. VELETRI [Concomitant]
     Active Substance: EPOPROSTENOL
     Indication: PRODUCT USED FOR UNKNOWN INDICATION
     Dosage: UNK
     Dates: end: 201512
  3. ORENITRAM [Suspect]
     Active Substance: TREPROSTINIL
     Dosage: 1 MG, TID
     Route: 048
  4. OPSUMIT [Concomitant]
     Active Substance: MACITENTAN
     Indication: PRODUCT USED FOR UNKNOWN INDICATION
  5. ORENITRAM [Suspect]
     Active Substance: TREPROSTINIL
     Indication: PULMONARY ARTERIAL HYPERTENSION
     Dosage: 6 MG, TID
     Route: 048
     Dates: start: 20150528
  6. ORENITRAM [Suspect]
     Active Substance: TREPROSTINIL
     Dosage: UNK

REACTIONS (10)
  - Drug intolerance [Unknown]
  - Vomiting [Unknown]
  - Abdominal pain upper [Unknown]
  - Headache [Unknown]
  - Pulmonary arterial hypertension [Unknown]
  - Syncope [Unknown]
  - Dizziness [Unknown]
  - Inappropriate schedule of drug administration [Unknown]
  - Blood cortisol decreased [Unknown]
  - Nausea [Unknown]

NARRATIVE: CASE EVENT DATE: 201512
